FAERS Safety Report 6861916-X (Version None)
Quarter: 2010Q3

REPORT INFORMATION
  Report Type: 
  Country: None (occurrence: None)
  Receive Date: 20100721
  Receipt Date: 20100715
  Transmission Date: 20110219
  Serious: Yes (Hospitalization, Other)
  Sender: FDA-Public Use
  Company Number: CA-ELI_LILLY_AND_COMPANY-CA201007002530

PATIENT
  Sex: Male

DRUGS (2)
  1. HUMALOG [Suspect]
  2. HUMULIN N [Suspect]

REACTIONS (6)
  - BLOOD GLUCOSE INCREASED [None]
  - COMA [None]
  - DIABETIC HYPERGLYCAEMIC COMA [None]
  - HYPOGLYCAEMIC UNCONSCIOUSNESS [None]
  - INCORRECT DOSE ADMINISTERED [None]
  - THERAPEUTIC RESPONSE DECREASED [None]
